FAERS Safety Report 8936726 (Version 1)
Quarter: 2012Q4

REPORT INFORMATION
  Report Type: 
  Country: US (occurrence: US)
  Receive Date: 20121130
  Receipt Date: 20121130
  Transmission Date: 20130627
  Serious: Yes (Hospitalization)
  Sender: FDA-Public Use
  Company Number: US-ROCHE-1158979

PATIENT
  Sex: Female

DRUGS (1)
  1. ALTEPLASE [Suspect]
     Indication: PRODUCT USED FOR UNKNOWN INDICATION
     Route: 042

REACTIONS (3)
  - Haematoma [Not Recovered/Not Resolved]
  - Blister [Not Recovered/Not Resolved]
  - Skin exfoliation [Not Recovered/Not Resolved]
